FAERS Safety Report 19053947 (Version 1)
Quarter: 2021Q1

REPORT INFORMATION
  Report Type: Spontaneous
  Country: CN (occurrence: CN)
  Receive Date: 20210324
  Receipt Date: 20210324
  Transmission Date: 20210420
  Serious: Yes (Other)
  Sender: FDA-Public Use
  Company Number: CN-FRESENIUS KABI-FK202102942

PATIENT
  Age: 52 Year
  Sex: Male

DRUGS (13)
  1. COBAMAMIDE [Concomitant]
     Active Substance: COBAMAMIDE
     Indication: PRODUCT USED FOR UNKNOWN INDICATION
     Route: 065
  2. INSULIN GLARGINE [Concomitant]
     Active Substance: INSULIN GLARGINE
     Indication: HYPERGLYCAEMIA
     Route: 065
  3. THYMALFASIN [Concomitant]
     Active Substance: THYMALFASIN
     Indication: CHRONIC HEPATITIS B
     Route: 065
  4. DEXAMETHASONE INJECTION (MANUFACTURER UNKNOWN) [Suspect]
     Active Substance: DEXAMETHASONE
     Indication: DEAFNESS NEUROSENSORY
     Dosage: DISSOLVED IN 0.2ML OF 2 PERCENT LIDOCAINE
     Route: 050
  5. ALPROSTADIL. [Concomitant]
     Active Substance: ALPROSTADIL
     Indication: DEAFNESS NEUROSENSORY
     Route: 065
  6. FLUNARIZINE [Concomitant]
     Active Substance: FLUNARIZINE
     Indication: DEAFNESS NEUROSENSORY
     Route: 065
  7. INSULIN ASPART [Concomitant]
     Active Substance: INSULIN ASPART
     Indication: HYPERGLYCAEMIA
     Route: 065
  8. PYRIDOXINE [Concomitant]
     Active Substance: PYRIDOXINE
     Indication: PRODUCT USED FOR UNKNOWN INDICATION
     Route: 065
  9. LIDOCAINE. [Concomitant]
     Active Substance: LIDOCAINE
     Indication: DEAFNESS NEUROSENSORY
     Route: 050
  10. BETAHISTINE [Concomitant]
     Active Substance: BETAHISTINE
     Indication: VESTIBULAR DISORDER
     Route: 065
  11. GINKGO BILOBA EXTRACT [Concomitant]
     Active Substance: GINKGO
     Indication: DEAFNESS NEUROSENSORY
     Route: 065
  12. BATROXOBIN [Concomitant]
     Active Substance: BATROXOBIN
     Indication: DEAFNESS NEUROSENSORY
     Route: 065
  13. ENTECAVIR MONOHYDRATE [Concomitant]
     Active Substance: ENTECAVIR
     Indication: CHRONIC HEPATITIS B
     Route: 065

REACTIONS (2)
  - Condition aggravated [Recovered/Resolved with Sequelae]
  - Meningitis cryptococcal [Recovered/Resolved with Sequelae]
